FAERS Safety Report 4330425-4 (Version None)
Quarter: 2004Q2

REPORT INFORMATION
  Report Type: 
  Country: None (occurrence: None)
  Receive Date: 20040402
  Receipt Date: 20030721
  Transmission Date: 20050107
  Serious: Yes (Death, Other)
  Sender: FDA-Public Use
  Company Number: US-BRISTOL-MYERS SQUIBB COMPANY-12332409

PATIENT
  Age: 54 Year
  Sex: Male

DRUGS (2)
  1. HYDROXYUREA [Suspect]
     Indication: PLATELET COUNT INCREASED
     Dosage: FOR YEARS
  2. AGRYLIN [Concomitant]
     Indication: PLATELET COUNT INCREASED

REACTIONS (2)
  - DRUG INEFFECTIVE [None]
  - PULMONARY EMBOLISM [None]
